FAERS Safety Report 5370862-2 (Version None)
Quarter: 2007Q2

REPORT INFORMATION
  Report Type: 
  Country: None (occurrence: None)
  Receive Date: 20070626
  Receipt Date: 20070430
  Transmission Date: 20071010
  Serious: Yes (Death, Other)
  Sender: FDA-Public Use
  Company Number: US-PURDUE-USA_2007_0027667

PATIENT
  Sex: Female

DRUGS (4)
  1. OXYCONTIN [Suspect]
     Indication: CANCER PAIN
     Dosage: 60 MG, UNK
     Dates: end: 20041201
  2. CARDIZEM [Concomitant]
     Indication: BLOOD PRESSURE
     Dosage: 240 UNK, DAILY
  3. GLUCOPHAGE [Concomitant]
     Dosage: 500 UNK, BID
  4. GLYBURIDE [Concomitant]
     Dosage: 5 MG, BID

REACTIONS (2)
  - DEATH [None]
  - PANCREATIC CARCINOMA [None]
